FAERS Safety Report 13182737 (Version 1)
Quarter: 2017Q1

REPORT INFORMATION
  Report Type: Spontaneous
  Country: JP (occurrence: JP)
  Receive Date: 20170203
  Receipt Date: 20170203
  Transmission Date: 20170428
  Serious: Yes (Hospitalization)
  Sender: FDA-Public Use
  Company Number: PHHY2017JP013339

PATIENT
  Age: 19 Year
  Sex: Female

DRUGS (6)
  1. CARBOPLATIN. [Suspect]
     Active Substance: CARBOPLATIN
     Indication: INTRACRANIAL GERM CELL TUMOUR
     Dosage: 450 MG/M2, QD
     Route: 065
  2. ETOPOSIDE. [Suspect]
     Active Substance: ETOPOSIDE
     Indication: INTRACRANIAL GERM CELL TUMOUR
     Dosage: 150 MG/M2, QD
     Route: 048
  3. IFOSFAMIDE. [Suspect]
     Active Substance: IFOSFAMIDE
     Indication: INTRACRANIAL GERM CELL TUMOUR
     Dosage: 900 MG/M2, QD
     Route: 065
  4. CISPLATIN. [Suspect]
     Active Substance: CISPLATIN
     Indication: INTRACRANIAL GERM CELL TUMOUR
     Dosage: 20 MG/M2, QD
     Route: 065
  5. ETOPOSIDE. [Suspect]
     Active Substance: ETOPOSIDE
     Dosage: 60 MG/M2, QD
     Route: 065
  6. ETOPOSIDE. [Suspect]
     Active Substance: ETOPOSIDE
     Dosage: 43 MG/M2, QD
     Route: 048

REACTIONS (4)
  - Renal disorder [Unknown]
  - Abnormal behaviour [Unknown]
  - Condition aggravated [Unknown]
  - Generalised oedema [Unknown]
